FAERS Safety Report 12424589 (Version 2)
Quarter: 2016Q2

REPORT INFORMATION
  Report Type: Report from Study
  Country: PL (occurrence: PL)
  Receive Date: 20160601
  Receipt Date: 20160610
  Transmission Date: 20160815
  Serious: Yes (Hospitalization)
  Sender: FDA-Public Use
  Company Number: PL-PFIZER INC-2016273808

PATIENT
  Age: 51 Year
  Sex: Male
  Weight: 83 kg

DRUGS (5)
  1. LEKOPTIN [Concomitant]
     Active Substance: VERAPAMIL HYDROCHLORIDE
     Indication: HYPERTENSION
     Dosage: 1X/DAY
     Route: 048
     Dates: start: 20160223
  2. ZOCOR [Concomitant]
     Active Substance: SIMVASTATIN
     Indication: HYPERLIPIDAEMIA
     Dosage: 1X/DAY
     Route: 048
     Dates: start: 20150619
  3. TOLUCOMBI [Concomitant]
     Indication: HYPERTENSION
     Dosage: 1X/DAY
     Route: 048
     Dates: start: 20160223
  4. TOFACITINIB CITRATE [Suspect]
     Active Substance: TOFACITINIB CITRATE
     Indication: PSORIASIS
     Dosage: 2X/DAY; DOSE UNKNOWN
     Route: 048
     Dates: start: 20120723
  5. DIURESIN [Concomitant]
     Active Substance: INDAPAMIDE
     Indication: HYPERTENSION
     Dosage: 2X/DAY
     Route: 048
     Dates: start: 20160223

REACTIONS (1)
  - Mental disorder [Unknown]
